FAERS Safety Report 5217116-2 (Version None)
Quarter: 2007Q1

REPORT INFORMATION
  Report Type: 
  Country: None (occurrence: None)
  Receive Date: 20070124
  Receipt Date: 20070122
  Transmission Date: 20070707
  Serious: Yes (Other)
  Sender: FDA-Public Use
  Company Number: US-GLAXOSMITHKLINE-A0582553A

PATIENT
  Age: 76 Year
  Sex: Female

DRUGS (7)
  1. PAXIL [Suspect]
     Indication: OBSESSIVE-COMPULSIVE DISORDER
     Route: 048
     Dates: start: 20020101
  2. PAXIL [Suspect]
     Route: 048
     Dates: start: 20040101
  3. EVISTA [Concomitant]
  4. PREVACID [Concomitant]
  5. ARICEPT [Concomitant]
  6. XANAX [Concomitant]
  7. NEURONTIN [Concomitant]

REACTIONS (4)
  - DEMENTIA ALZHEIMER'S TYPE [None]
  - DEPRESSION [None]
  - DIZZINESS [None]
  - DRUG INEFFECTIVE [None]
